FAERS Safety Report 8987262 (Version 1)
Quarter: 2012Q4

REPORT INFORMATION
  Report Type: 
  Country: JP (occurrence: JP)
  Receive Date: 20121226
  Receipt Date: 20121226
  Transmission Date: 20130627
  Serious: Yes (Other)
  Sender: FDA-Public Use
  Company Number: PHHY2012JP116902

PATIENT
  Age: 66 Year
  Sex: Female

DRUGS (8)
  1. EPIRUBICIN [Suspect]
     Indication: B-CELL LYMPHOMA
  2. VINCRISTINE [Suspect]
     Indication: B-CELL LYMPHOMA
  3. MITOXANTRONE [Suspect]
     Indication: B-CELL LYMPHOMA
  4. METHOTREXATE [Suspect]
     Indication: B-CELL LYMPHOMA
  5. PREDNISOLONE SANDOZ [Suspect]
     Indication: B-CELL LYMPHOMA
  6. ETOPOSIDE [Suspect]
     Indication: B-CELL LYMPHOMA
  7. CISPLATIN [Suspect]
     Indication: B-CELL LYMPHOMA
  8. CYCLOPHOSPHAMIDE [Suspect]
     Indication: B-CELL LYMPHOMA

REACTIONS (5)
  - Sweat gland tumour [Unknown]
  - Rash papular [Unknown]
  - Skin mass [Unknown]
  - Erythema [Unknown]
  - Skin lesion [Unknown]
